FAERS Safety Report 8294211-5 (Version None)
Quarter: 2012Q2

REPORT INFORMATION
  Report Type: 
  Country: None (occurrence: None)
  Receive Date: 20120418
  Receipt Date: 20120411
  Transmission Date: 20120825
  Serious: Yes (Other)
  Sender: FDA-Public Use
  Company Number: PHHY2012US031372

PATIENT
  Age: 84 Year
  Sex: Female

DRUGS (4)
  1. ASPIRIN [Concomitant]
  2. CALCIUM CHANNEL BLOCKERS [Concomitant]
  3. ANGIOTENSIN CONVERTING ENZYME BLOCKERS [Concomitant]
  4. METOPROLOL TARTRATE [Suspect]
     Indication: BLOOD PRESSURE
     Dosage: 50 MG, BID
     Route: 048

REACTIONS (1)
  - HALLUCINATION [None]
